FAERS Safety Report 6848039-0 (Version None)
Quarter: 2010Q3

REPORT INFORMATION
  Report Type: 
  Country: None (occurrence: None)
  Receive Date: 20100716
  Receipt Date: 20100705
  Transmission Date: 20110219
  Serious: Yes (Death)
  Sender: FDA-Public Use
  Company Number: TR-ABBOTT-10P-161-0655898-00

PATIENT
  Age: 20 Year
  Sex: Female

DRUGS (4)
  1. DEPAKENE [Suspect]
     Indication: EPILEPSY
     Route: 048
     Dates: start: 20100101, end: 20100101
  2. DEPAKENE [Suspect]
     Route: 048
     Dates: start: 20100101, end: 20100101
  3. DEPAKENE [Suspect]
     Dates: start: 20100101, end: 20100101
  4. VALPROATE SODIUM [Concomitant]
     Indication: EPILEPSY
     Dates: start: 20060101

REACTIONS (1)
  - DEATH [None]
